FAERS Safety Report 6969434-5 (Version None)
Quarter: 2010Q3

REPORT INFORMATION
  Report Type: 
  Country: None (occurrence: None)
  Receive Date: 20100902
  Receipt Date: 20100819
  Transmission Date: 20110219
  Serious: Yes (Life-Threatening)
  Sender: FDA-Public Use
  Company Number: MPS1-1000119

PATIENT
  Age: 39 Year
  Sex: Female
  Weight: 39 kg

DRUGS (1)
  1. ALDURAZYME [Suspect]
     Indication: MUCOPOLYSACCHARIDOSIS I
     Dosage: INTRAVENOUS
     Route: 042
     Dates: start: 20031001

REACTIONS (5)
  - ABDOMINAL HERNIA [None]
  - ACUTE ABDOMEN [None]
  - CARDIAC FAILURE [None]
  - HYPOVITAMINOSIS [None]
  - MALABSORPTION [None]
